FAERS Safety Report 16474548 (Version 1)
Quarter: 2019Q3

REPORT INFORMATION
  Report Type: Spontaneous
  Country: US (occurrence: US)
  Receive Date: 20190624
  Receipt Date: 20190624
  Transmission Date: 20191004
  Serious: Yes (Other)
  Sender: FDA-Public Use
  Company Number: None

PATIENT
  Age: 24 Year
  Sex: Female
  Weight: 51.3 kg

DRUGS (1)
  1. ALLERGY RELIEF INDOOR AND OUTDOOR ALLERGIES [Suspect]
     Active Substance: CETIRIZINE HYDROCHLORIDE
     Indication: SEASONAL ALLERGY
     Dosage: ?          QUANTITY:1 TABLET(S);?
     Route: 048
     Dates: start: 20190618, end: 20190619

REACTIONS (1)
  - Urticaria [None]

NARRATIVE: CASE EVENT DATE: 20190619
